FAERS Safety Report 11830656 (Version 3)
Quarter: 2016Q1

REPORT INFORMATION
  Report Type: Spontaneous
  Country: US (occurrence: US)
  Receive Date: 20151214
  Receipt Date: 20160309
  Transmission Date: 20160525
  Serious: No
  Sender: FDA-Public Use
  Company Number: US-009507513-1512USA002940

PATIENT
  Age: 28 Year
  Sex: Female
  Weight: 125.17 kg

DRUGS (1)
  1. NEXPLANON [Suspect]
     Active Substance: ETONOGESTREL
     Indication: CONTRACEPTION
     Dosage: UNK
     Route: 059
     Dates: start: 20150415, end: 20151203

REACTIONS (5)
  - Device breakage [Recovered/Resolved]
  - Pelvic pain [Recovered/Resolved]
  - Depression [Recovered/Resolved]
  - Device difficult to use [Recovered/Resolved]
  - Weight increased [Recovered/Resolved]

NARRATIVE: CASE EVENT DATE: 2015
